FAERS Safety Report 10215701 (Version 1)
Quarter: 2014Q2

REPORT INFORMATION
  Report Type: Spontaneous
  Country: IN (occurrence: None)
  Receive Date: 20140602
  Receipt Date: 20140602
  Transmission Date: 20141212
  Serious: Yes (Other)
  Sender: FDA-Public Use
  Company Number: 2014P1004522

PATIENT
  Age: 60 Year
  Sex: Female

DRUGS (3)
  1. VALPROATE SODIUM [Suspect]
     Indication: ABNORMAL BEHAVIOUR
  2. VALPROATE SODIUM [Suspect]
     Indication: AGITATION
  3. OLANZAPINE [Suspect]
     Indication: PSYCHOTIC DISORDER

REACTIONS (10)
  - Neuroleptic malignant syndrome [None]
  - Dehydration [None]
  - Generalised tonic-clonic seizure [None]
  - Anaemia [None]
  - Leukocytosis [None]
  - Abnormal behaviour [None]
  - Stupor [None]
  - Ammonia increased [None]
  - Hyponatraemia [None]
  - Toxicity to various agents [None]
